FAERS Safety Report 4924236-6 (Version None)
Quarter: 2006Q1

REPORT INFORMATION
  Report Type: 
  Country: None (occurrence: None)
  Receive Date: 20060227
  Receipt Date: 20051228
  Transmission Date: 20060701
  Serious: No
  Sender: FDA-Public Use
  Company Number: US-GLAXOSMITHKLINE-A0587067A

PATIENT
  Sex: Male

DRUGS (6)
  1. WELLBUTRIN XL [Suspect]
     Indication: DEPRESSION
     Dosage: 150MG PER DAY
     Route: 048
     Dates: start: 20051101
  2. TOPROL-XL [Concomitant]
  3. NEXIUM [Concomitant]
  4. VITAMIN B-12 [Concomitant]
  5. ERYTHROMYCIN [Concomitant]
  6. FLOMAX [Concomitant]

REACTIONS (2)
  - POLLAKIURIA [None]
  - URINARY RETENTION [None]
